FAERS Safety Report 8240214-6 (Version None)
Quarter: 2012Q1

REPORT INFORMATION
  Report Type: 
  Country: None (occurrence: None)
  Receive Date: 20120328
  Receipt Date: 20120321
  Transmission Date: 20120608
  Serious: Yes (Hospitalization)
  Sender: FDA-Public Use
  Company Number: US-BAYER-2011-070795

PATIENT
  Age: 19 Year
  Sex: Female
  Weight: 80.726 kg

DRUGS (2)
  1. METFORMIN HCL [Concomitant]
     Indication: POLYCYSTIC OVARIES
     Dosage: UNK
     Dates: start: 20000101, end: 20110101
  2. YASMIN [Suspect]
     Indication: PRODUCT USED FOR UNKNOWN INDICATION
     Dosage: UNK
     Route: 048
     Dates: start: 20040101, end: 20070201

REACTIONS (3)
  - GALLBLADDER DISORDER [None]
  - PAIN [None]
  - NAUSEA [None]
